FAERS Safety Report 5282985-7 (Version None)
Quarter: 2007Q2

REPORT INFORMATION
  Report Type: 
  Country: None (occurrence: None)
  Receive Date: 20070402
  Receipt Date: 20070329
  Transmission Date: 20071010
  Serious: Yes (Hospitalization)
  Sender: FDA-Public Use
  Company Number: US-BRISTOL-MYERS SQUIBB COMPANY-13732953

PATIENT
  Age: 69 Year
  Sex: Male

DRUGS (24)
  1. CETUXIMAB [Suspect]
     Indication: NON-SMALL CELL LUNG CANCER
     Route: 042
     Dates: start: 20060919, end: 20060919
  2. TAXOL [Suspect]
     Indication: NON-SMALL CELL LUNG CANCER
     Route: 042
     Dates: start: 20060912, end: 20060912
  3. CARBOPLATIN [Suspect]
     Indication: NON-SMALL CELL LUNG CANCER
     Route: 042
     Dates: start: 20060912, end: 20060912
  4. LIPITOR [Concomitant]
     Dates: start: 19930101
  5. ALBUTEROL [Concomitant]
     Dates: start: 19930101
  6. PREDNISONE [Concomitant]
     Dates: start: 20040101
  7. LORAZEPAM [Concomitant]
     Dates: start: 20040101
  8. LOTREL [Concomitant]
     Dates: start: 20040101
  9. ASPIRIN [Concomitant]
     Dates: start: 19930101
  10. ADVAIR DISKUS 100/50 [Concomitant]
     Dates: start: 20040101
  11. VICODIN [Concomitant]
     Dates: start: 20060801
  12. ADVIL [Concomitant]
     Dates: start: 20060905
  13. DUONEB [Concomitant]
     Dates: start: 20061014
  14. AVELOX [Concomitant]
     Dates: start: 20061014
  15. DIGOXIN [Concomitant]
     Dates: start: 20061014
  16. COLACE [Concomitant]
     Dates: start: 20061014
  17. FERROUS SULFATE [Concomitant]
     Dates: start: 20061014
  18. MAGNESIUM OXIDE [Concomitant]
     Dates: start: 20061014
  19. OXYCONTIN [Concomitant]
     Dates: start: 20061014
  20. AMBIEN [Concomitant]
     Dates: start: 20061014
  21. TYLENOL [Concomitant]
     Dates: start: 20061014
  22. AMITRIPTYLINE HCL [Concomitant]
     Dates: start: 20060919
  23. PROCRIT [Concomitant]
     Dates: start: 20060912, end: 20060919
  24. LASIX [Concomitant]
     Dates: start: 20060912, end: 20060912

REACTIONS (1)
  - PNEUMONIA [None]
